FAERS Safety Report 4719676-4 (Version None)
Quarter: 2005Q3

REPORT INFORMATION
  Report Type: 
  Country: None (occurrence: None)
  Receive Date: 20050721
  Receipt Date: 20040614
  Transmission Date: 20060218
  Serious: Yes (Other)
  Sender: FDA-Public Use
  Company Number: US-GLAXOSMITHKLINE-A0514511A

PATIENT
  Age: 42 Year
  Sex: Female

DRUGS (5)
  1. AVANDIA [Suspect]
     Route: 048
     Dates: start: 20040526
  2. HUMALOG [Concomitant]
  3. LANTUS [Concomitant]
  4. PARLODEL [Concomitant]
  5. MERIDIA [Concomitant]

REACTIONS (1)
  - HYPOGLYCAEMIA [None]
